FAERS Safety Report 8988880 (Version 3)
Quarter: 2013Q1

REPORT INFORMATION
  Report Type: Spontaneous
  Country: US (occurrence: US)
  Receive Date: 20121228
  Receipt Date: 20130320
  Transmission Date: 20140127
  Serious: Yes (Other)
  Sender: FDA-Public Use
  Company Number: US-TEVA-377990USA

PATIENT
  Sex: Male
  Weight: 109.87 kg

DRUGS (14)
  1. COPAXONE [Suspect]
     Indication: MULTIPLE SCLEROSIS
     Dosage: 20 MILLIGRAM DAILY;
     Route: 058
     Dates: start: 20121004
  2. TRIAMTERENE [Concomitant]
     Indication: FLUID RETENTION
     Route: 048
     Dates: start: 201209
  3. ALPRAZOLAM [Concomitant]
     Indication: ANXIETY
     Route: 048
     Dates: start: 2010
  4. TOPROL [Concomitant]
     Indication: HYPERTENSION
     Route: 048
     Dates: start: 2010
  5. DIOVAN [Concomitant]
     Indication: HYPERTENSION
     Dosage: 80 MILLIGRAM DAILY;
     Route: 048
     Dates: start: 2006
  6. LIPITOR [Concomitant]
     Indication: BLOOD CHOLESTEROL INCREASED
     Route: 048
     Dates: start: 2000
  7. WARFARIN [Concomitant]
     Indication: ATRIAL FIBRILLATION
     Dosage: 5 MILLIGRAM DAILY;
     Route: 048
     Dates: start: 201210
  8. WARFARIN [Concomitant]
     Dosage: .0205 MILLIGRAM DAILY;
     Route: 048
     Dates: start: 201210
  9. METFORMIN [Concomitant]
     Indication: DIABETES MELLITUS
     Dosage: 1500 MILLIGRAM DAILY;
     Route: 048
     Dates: start: 2010
  10. ACETAMINOPHEN W/HYDROCODONE [Concomitant]
     Indication: PAIN
     Dosage: 325MG/5MG; 1-2 DAILY
     Route: 048
  11. ALBUTEROL [Concomitant]
     Indication: DYSPNOEA
     Route: 055
  12. SPIRIVA [Concomitant]
     Indication: DYSPNOEA
     Route: 055
  13. ADVAIR [Concomitant]
     Indication: DYSPNOEA
     Dosage: 250MCG/50MCG
     Route: 055
  14. PROVENTIL [Concomitant]
     Indication: DYSPNOEA
     Route: 055

REACTIONS (4)
  - Oxygen saturation decreased [Not Recovered/Not Resolved]
  - Dyspnoea [Recovering/Resolving]
  - Alopecia [Not Recovered/Not Resolved]
  - Palpitations [Not Recovered/Not Resolved]
